FAERS Safety Report 4474957-7 (Version None)
Quarter: 2004Q3

REPORT INFORMATION
  Report Type: 
  Country: None (occurrence: None)
  Receive Date: 20040923
  Receipt Date: 20040819
  Transmission Date: 20050211
  Serious: Yes (Hospitalization, Disabling, Other)
  Sender: FDA-Public Use
  Company Number: USA040874240

PATIENT
  Age: 80 Year
  Sex: Female
  Weight: 51 kg

DRUGS (3)
  1. PROZAC [Suspect]
     Dates: end: 20010101
  2. FORTEO [Suspect]
     Indication: OSTEOPOROSIS
     Dates: start: 20040717
  3. OSCAL (CALCIUM CARBONATE) [Concomitant]

REACTIONS (6)
  - CYSTITIS [None]
  - FATIGUE [None]
  - FEELING ABNORMAL [None]
  - HYPERTENSION [None]
  - INAPPROPRIATE ANTIDIURETIC HORMONE SECRETION [None]
  - NAUSEA [None]
